FAERS Safety Report 5387454-1 (Version None)
Quarter: 2007Q3

REPORT INFORMATION
  Report Type: 
  Country: None (occurrence: None)
  Receive Date: 20070712
  Receipt Date: 20070702
  Transmission Date: 20080115
  Serious: Yes (Death)
  Sender: FDA-Public Use
  Company Number: 2007-00642

PATIENT
  Age: 41 Year
  Sex: Male
  Weight: 66 kg

DRUGS (5)
  1. VELCADE [Suspect]
     Indication: T-CELL LYMPHOMA
     Dosage: 2.60 MG, INTRAVENOUS
     Route: 042
     Dates: start: 20050222, end: 20070226
  2. DOXORUBICIN HCL [Suspect]
     Indication: T-CELL LYMPHOMA
     Dosage: 129.75 MG, INTRAVENOUS
     Route: 042
     Dates: start: 20070222
  3. CYCLOPHOSPHAMIDE [Suspect]
     Indication: T-CELL LYMPHOMA
     Dosage: 2076.00 MG, INTRAVENOUS
     Route: 042
     Dates: start: 20070222
  4. ELDISINE [Suspect]
     Indication: T-CELL LYMPHOMA
     Dosage: 3.46 MG, INTRAVENOUS
     Route: 042
     Dates: start: 20070222, end: 20070226
  5. BLEOMYCIN [Suspect]
     Indication: T-CELL LYMPHOMA
     Dosage: 10.00 MG, INTRAVENOUS
     Route: 042
     Dates: start: 20070222, end: 20070226

REACTIONS (1)
  - DEATH [None]
